FAERS Safety Report 5402646-0 (Version None)
Quarter: 2007Q3

REPORT INFORMATION
  Report Type: 
  Country: None (occurrence: None)
  Receive Date: 20070801
  Receipt Date: 20070322
  Transmission Date: 20080115
  Serious: No
  Sender: FDA-Public Use
  Company Number: A0644717A

PATIENT
  Sex: Male

DRUGS (2)
  1. IMITREX [Suspect]
     Indication: MIGRAINE
     Dosage: 1TAB SINGLE DOSE
     Route: 048
     Dates: start: 20070320, end: 20070320
  2. DENTAL ANESTHETIC [Suspect]
     Indication: DENTAL OPERATION
     Dates: start: 20070320, end: 20070320

REACTIONS (3)
  - DRUG INEFFECTIVE [None]
  - DRUG INTERACTION [None]
  - INCORRECT DOSE ADMINISTERED [None]
